FAERS Safety Report 5406260-2 (Version None)
Quarter: 2007Q3

REPORT INFORMATION
  Report Type: 
  Country: None (occurrence: None)
  Receive Date: 20070806
  Receipt Date: 20070801
  Transmission Date: 20080115
  Serious: Yes (Other)
  Sender: FDA-Public Use
  Company Number: PHBS2007JP10586

PATIENT
  Age: 40 Year
  Sex: Female
  Weight: 65 kg

DRUGS (3)
  1. NITRODERM [Suspect]
     Indication: ELECTROCARDIOGRAM ST SEGMENT DEPRESSION
     Dosage: 2 DF/DAY
     Route: 062
  2. METHERGINE [Concomitant]
     Dosage: 0.2 MG, UNK
     Route: 041
  3. OXYTOCIN [Concomitant]
     Dosage: 10 IU, UNK

REACTIONS (2)
  - UTERINE HAEMORRHAGE [None]
  - UTERINE HYPOTONUS [None]
